FAERS Safety Report 25542103 (Version 1)
Quarter: 2025Q3

REPORT INFORMATION
  Report Type: Spontaneous
  Country: JP (occurrence: JP)
  Receive Date: 20250711
  Receipt Date: 20250711
  Transmission Date: 20251021
  Serious: Yes (Death, Hospitalization, Other)
  Sender: MERCK SHARP & DOHME LLC
  Company Number: JP-009507513-2298700

PATIENT
  Age: 66 Year
  Sex: Male
  Weight: 55.1 kg

DRUGS (1)
  1. JANUVIA [Suspect]
     Active Substance: SITAGLIPTIN PHOSPHATE
     Indication: Type 2 diabetes mellitus
     Dosage: ONE TABLET OF 50MG ONCE
     Route: 048
     Dates: start: 20171220, end: 20210208

REACTIONS (5)
  - Death [Fatal]
  - Pemphigoid [Not Recovered/Not Resolved]
  - Peripheral arterial occlusive disease [Unknown]
  - Sinusitis [Unknown]
  - Spinal operation [Unknown]

NARRATIVE: CASE EVENT DATE: 20201229
